FAERS Safety Report 23810569 (Version 1)
Quarter: 2024Q2

REPORT INFORMATION
  Report Type: Spontaneous
  Country: US (occurrence: None)
  Receive Date: 20240502
  Receipt Date: 20240502
  Transmission Date: 20240716
  Serious: Yes (Hospitalization)
  Sender: FDA-Public Use
  Company Number: None

PATIENT
  Age: 88 Year
  Sex: Male

DRUGS (1)
  1. CAPECITABINE [Suspect]
     Active Substance: CAPECITABINE
     Indication: Gastric neoplasm
     Dosage: FREQUENCY : AS DIRECTED;?
     Route: 048
     Dates: start: 20240126

REACTIONS (2)
  - Cystitis [None]
  - Clostridium test positive [None]

NARRATIVE: CASE EVENT DATE: 20240228
